FAERS Safety Report 6421419-3 (Version None)
Quarter: 2009Q4

REPORT INFORMATION
  Report Type: 
  Country: None (occurrence: None)
  Receive Date: 20091029
  Receipt Date: 20091029
  Transmission Date: 20100525
  Serious: Yes (Other)
  Sender: FDA-Public Use
  Company Number: None

PATIENT

DRUGS (1)
  1. EXELON [Suspect]
     Indication: MEMORY IMPAIRMENT
     Dosage: 1-PATCH DAILY
     Dates: start: 20090717, end: 20090725

REACTIONS (3)
  - PRURITUS [None]
  - RASH [None]
  - URTICARIA [None]
